FAERS Safety Report 8584639 (Version 2)
Quarter: 2013Q1

REPORT INFORMATION
  Report Type: Spontaneous
  Country: DE (occurrence: DE)
  Receive Date: 20120529
  Receipt Date: 20130123
  Transmission Date: 20140127
  Serious: Yes (Hospitalization)
  Sender: FDA-Public Use
  Company Number: DE-ROCHE-1071806

PATIENT
  Age: 28 Year
  Sex: Female
  Weight: 56 kg

DRUGS (3)
  1. XOLAIR [Suspect]
     Indication: ASTHMA
     Route: 065
     Dates: start: 200910
  2. XOLAIR [Suspect]
     Route: 058
     Dates: start: 20101003, end: 201011
  3. XOLAIR [Suspect]
     Route: 065
     Dates: start: 20120508

REACTIONS (4)
  - HELLP syndrome [Unknown]
  - Premature labour [Unknown]
  - Maternal exposure during pregnancy [Unknown]
  - Exposure during breast feeding [Unknown]
